FAERS Safety Report 8165621-1 (Version None)
Quarter: 2012Q1

REPORT INFORMATION
  Report Type: 
  Country: None (occurrence: None)
  Receive Date: 20120223
  Receipt Date: 20120223
  Transmission Date: 20120608
  Serious: Yes (Disabling)
  Sender: FDA-Public Use
  Company Number: None

PATIENT
  Age: 42 Year
  Sex: Male
  Weight: 72.5755 kg

DRUGS (1)
  1. FLUTICASONE PROPIONATE [Suspect]
     Indication: SINUSITIS
     Dosage: QTY 16 ACCORD. TO DIRECTION NASAL
     Route: 045
     Dates: start: 20100908

REACTIONS (3)
  - ANOSMIA [None]
  - SINUS CONGESTION [None]
  - SINUSITIS [None]
